FAERS Safety Report 19405452 (Version 2)
Quarter: 2022Q3

REPORT INFORMATION
  Report Type: Spontaneous
  Country: CH (occurrence: CH)
  Receive Date: 20210611
  Receipt Date: 20220822
  Transmission Date: 20221026
  Serious: Yes (Other)
  Sender: FDA-Public Use
  Company Number: None

PATIENT
  Age: 79 Year
  Sex: Male

DRUGS (24)
  1. ESBRIET [Suspect]
     Active Substance: PIRFENIDONE
     Indication: Product used for unknown indication
     Route: 048
     Dates: start: 20210331, end: 20210420
  2. LANTUS [Concomitant]
     Active Substance: INSULIN GLARGINE
  3. SINTROM [Concomitant]
     Active Substance: ACENOCOUMAROL
  4. ASPIRIN [Concomitant]
     Active Substance: ASPIRIN
     Dates: start: 20210326
  5. AMLODIPINE [Concomitant]
     Active Substance: AMLODIPINE BESYLATE
  6. METOPROLOL SUCCINATE [Concomitant]
     Active Substance: METOPROLOL SUCCINATE
  7. MYSOLINE [Concomitant]
     Active Substance: PRIMIDONE
  8. NEXIUM [Concomitant]
     Active Substance: ESOMEPRAZOLE MAGNESIUM
  9. CALCIUM\CHOLECALCIFEROL [Concomitant]
     Active Substance: CALCIUM\CHOLECALCIFEROL
     Dates: start: 20210330
  10. SODIUM PICOSULFATE [Concomitant]
     Active Substance: SODIUM PICOSULFATE
     Dates: start: 20210328
  11. NOVORAPID [Concomitant]
     Active Substance: INSULIN ASPART
     Dates: start: 20210326
  12. TEMESTA [Concomitant]
  13. FIG FRUIT OIL\SORBITOL [Concomitant]
     Active Substance: FIG FRUIT OIL\SORBITOL
  14. DAFALGAN [Concomitant]
     Active Substance: ACETAMINOPHEN
     Dates: start: 20210302, end: 20210421
  15. ENOXAPARIN SODIUM [Concomitant]
     Active Substance: ENOXAPARIN SODIUM
     Dates: start: 20210326, end: 20210330
  16. DEXAMETHASONE [Concomitant]
     Active Substance: DEXAMETHASONE
  17. ESIDREX [Concomitant]
     Active Substance: HYDROCHLOROTHIAZIDE
     Dates: start: 20210326, end: 20210421
  18. IRBESARTAN [Concomitant]
     Active Substance: IRBESARTAN
     Dates: start: 20210326, end: 20210421
  19. LINAGLIPTIN [Concomitant]
     Active Substance: LINAGLIPTIN
     Dates: end: 20210421
  20. CRESTOR [Concomitant]
     Active Substance: ROSUVASTATIN CALCIUM
     Dates: end: 20210420
  21. TAMSULOSIN HYDROCHLORIDE [Concomitant]
     Active Substance: TAMSULOSIN HYDROCHLORIDE
     Dates: end: 20210421
  22. TORSEMIDE [Concomitant]
     Active Substance: TORSEMIDE
     Dates: start: 20210328, end: 20210330
  23. ZOLPIDEM [Concomitant]
     Active Substance: ZOLPIDEM TARTRATE
     Dates: start: 20210331, end: 20210403
  24. BUPRENORPHINE HYDROCHLORIDE [Concomitant]
     Active Substance: BUPRENORPHINE HYDROCHLORIDE
     Dates: start: 20210329, end: 20210421

REACTIONS (1)
  - Cholestasis [Recovering/Resolving]

NARRATIVE: CASE EVENT DATE: 20210430
